FAERS Safety Report 17574523 (Version 5)
Quarter: 2020Q2

REPORT INFORMATION
  Report Type: Spontaneous
  Country: BR (occurrence: BR)
  Receive Date: 20200324
  Receipt Date: 20200608
  Transmission Date: 20200713
  Serious: Yes (Hospitalization, Other)
  Sender: FDA-Public Use
  Company Number: BR-CELLTRION INC.-2018BR023499

PATIENT

DRUGS (4)
  1. CALCITRIOL. [Concomitant]
     Active Substance: CALCITRIOL
     Dosage: UNK
  2. IMUNEM [Concomitant]
     Dosage: UNK
  3. REMSIMA [Suspect]
     Active Substance: INFLIXIMAB
     Indication: CROHN^S DISEASE
     Dosage: AMPOULE BOTTLE 100 MG
     Route: 065
  4. REMSIMA [Suspect]
     Active Substance: INFLIXIMAB
     Dosage: UNK
     Route: 065
     Dates: start: 20190904

REACTIONS (6)
  - Immune system disorder [Unknown]
  - Fall [Unknown]
  - Hypertension [Unknown]
  - Pneumonia [Unknown]
  - Weight decreased [Unknown]
  - Diarrhoea [Unknown]
